FAERS Safety Report 12253410 (Version 1)
Quarter: 2016Q2

REPORT INFORMATION
  Report Type: Spontaneous
  Country: US (occurrence: US)
  Receive Date: 20160411
  Receipt Date: 20160411
  Transmission Date: 20160815
  Serious: Yes (Hospitalization, Other)
  Sender: FDA-Public Use
  Company Number: US-TEVA-648935USA

PATIENT
  Sex: Male
  Weight: 79 kg

DRUGS (6)
  1. CALCITRIOL. [Suspect]
     Active Substance: CALCITRIOL
     Route: 065
  2. MAGNESIUM OXIDE. [Concomitant]
     Active Substance: MAGNESIUM OXIDE
  3. PHOSPHATE [Concomitant]
     Active Substance: UNSPECIFIED INGREDIENT
  4. MIRTAZAPINE. [Suspect]
     Active Substance: MIRTAZAPINE
     Indication: ANXIETY
  5. ALPRAZOLAM. [Concomitant]
     Active Substance: ALPRAZOLAM
  6. MIRTAZAPINE. [Suspect]
     Active Substance: MIRTAZAPINE
     Indication: SLEEP DISORDER
     Route: 065

REACTIONS (12)
  - Renal disorder [Unknown]
  - Coma [Unknown]
  - Feeling abnormal [Unknown]
  - Loss of consciousness [Unknown]
  - Muscle twitching [Unknown]
  - Hypophosphataemia [Unknown]
  - Anxiety [Unknown]
  - Hypomagnesaemia [Unknown]
  - Palpitations [Unknown]
  - Cardiac disorder [Unknown]
  - Hypovitaminosis [Unknown]
  - Disturbance in attention [Unknown]
